FAERS Safety Report 13470799 (Version 5)
Quarter: 2018Q1

REPORT INFORMATION
  Report Type: Spontaneous
  Country: US (occurrence: US)
  Receive Date: 20170424
  Receipt Date: 20180108
  Transmission Date: 20180508
  Serious: Yes (Other)
  Sender: FDA-Public Use
  Company Number: PHEH2017US011870

PATIENT
  Sex: Female
  Weight: 45.35 kg

DRUGS (1)
  1. ZOFRAN [Suspect]
     Active Substance: ONDANSETRON HYDROCHLORIDE
     Indication: PRODUCT USED FOR UNKNOWN INDICATION
     Dosage: 1 DF, Q6H, PRN
     Route: 048

REACTIONS (7)
  - Maternal exposure during pregnancy [Unknown]
  - Emotional distress [Unknown]
  - Diverticulitis [Unknown]
  - Injury [Unknown]
  - Abdominal discomfort [Unknown]
  - Back pain [Unknown]
  - Product use issue [Unknown]
